FAERS Safety Report 13109783 (Version 1)
Quarter: 2017Q1

REPORT INFORMATION
  Report Type: Spontaneous
  Country: IT (occurrence: IT)
  Receive Date: 20170112
  Receipt Date: 20170112
  Transmission Date: 20170428
  Serious: Yes (Hospitalization, Other)
  Sender: FDA-Public Use
  Company Number: IT-ENDO PHARMACEUTICALS INC-2017SCPR016321

PATIENT
  Age: 3 Year
  Sex: Male

DRUGS (1)
  1. LAMOTRIGINE. [Suspect]
     Active Substance: LAMOTRIGINE
     Indication: PRODUCT USED FOR UNKNOWN INDICATION
     Dosage: UNK UNK, UNKNOWN
     Route: 065

REACTIONS (16)
  - Bundle branch block right [Recovered/Resolved]
  - Status epilepticus [Recovered/Resolved]
  - Dystonia [Recovered/Resolved]
  - Restlessness [Unknown]
  - Agitation [Unknown]
  - Malaise [Unknown]
  - Hyperphagia [Not Recovered/Not Resolved]
  - Hyperhidrosis [Unknown]
  - Accidental exposure to product by child [Unknown]
  - Loss of consciousness [Recovered/Resolved]
  - Overdose [Unknown]
  - Ataxia [Recovered/Resolved]
  - Oculogyric crisis [Recovered/Resolved]
  - Sinus tachycardia [Recovered/Resolved]
  - Thirst [Unknown]
  - Toxicity to various agents [Unknown]
